FAERS Safety Report 18343996 (Version 4)
Quarter: 2021Q4

REPORT INFORMATION
  Report Type: Spontaneous
  Country: US (occurrence: US)
  Receive Date: 20201005
  Receipt Date: 20211029
  Transmission Date: 20220303
  Serious: No
  Sender: FDA-Public Use
  Company Number: US-PFIZER INC-2020379603

PATIENT
  Age: 61 Year
  Sex: Female

DRUGS (1)
  1. BRAFTOVI [Suspect]
     Active Substance: ENCORAFENIB
     Indication: Adenocarcinoma of colon
     Dosage: 300 MG, DAILY
     Route: 048

REACTIONS (3)
  - Rash [Unknown]
  - Melanocytic naevus [Unknown]
  - Feeling abnormal [Unknown]
